FAERS Safety Report 5481217-4 (Version None)
Quarter: 2007Q4

REPORT INFORMATION
  Report Type: 
  Country: None (occurrence: None)
  Receive Date: 20071010
  Receipt Date: 20071002
  Transmission Date: 20080405
  Serious: Yes (Hospitalization)
  Sender: FDA-Public Use
  Company Number: DE-JNJFOC-20070903272

PATIENT
  Age: 58 Year
  Sex: Male

DRUGS (3)
  1. REMICADE [Suspect]
     Route: 042
  2. REMICADE [Suspect]
     Route: 042
  3. REMICADE [Suspect]
     Indication: PSORIASIS
     Dosage: PATIENT HAS RECEIVED 5 OR 6 DOSES AND TOLERATED WELL TO THIS POINT.
     Route: 042

REACTIONS (3)
  - HEADACHE [None]
  - LUNG INFILTRATION [None]
  - PYREXIA [None]
